FAERS Safety Report 24365268 (Version 4)
Quarter: 2025Q1

REPORT INFORMATION
  Report Type: Report from Study
  Country: CA (occurrence: CA)
  Receive Date: 20240926
  Receipt Date: 20250331
  Transmission Date: 20250408
  Serious: Yes (Other)
  Sender: TAKEDA
  Company Number: CA-TAKEDA-2024TUS021189

PATIENT
  Age: 35 Year
  Sex: Female

DRUGS (5)
  1. VEDOLIZUMAB [Suspect]
     Active Substance: VEDOLIZUMAB
     Indication: Colitis ulcerative
  2. VEDOLIZUMAB [Suspect]
     Active Substance: VEDOLIZUMAB
  3. VEDOLIZUMAB [Suspect]
     Active Substance: VEDOLIZUMAB
  4. VEDOLIZUMAB [Suspect]
     Active Substance: VEDOLIZUMAB
  5. MESALAMINE [Concomitant]
     Active Substance: MESALAMINE

REACTIONS (13)
  - Syncope [Recovered/Resolved]
  - Abdominal discomfort [Unknown]
  - Defaecation urgency [Not Recovered/Not Resolved]
  - Gastrointestinal infection [Recovered/Resolved]
  - Illness [Recovered/Resolved]
  - Abdominal pain [Not Recovered/Not Resolved]
  - Presyncope [Recovered/Resolved]
  - Sinusitis [Recovered/Resolved]
  - Feeling abnormal [Recovered/Resolved]
  - Tremor [Recovered/Resolved]
  - Tachycardia [Recovered/Resolved]
  - Hypertension [Recovered/Resolved]
  - Paraesthesia [Recovered/Resolved]

NARRATIVE: CASE EVENT DATE: 20240917
